FAERS Safety Report 6180720-1 (Version None)
Quarter: 2009Q2

REPORT INFORMATION
  Report Type: 
  Country: None (occurrence: None)
  Receive Date: 20090506
  Receipt Date: 20090427
  Transmission Date: 20091009
  Serious: Yes (Death)
  Sender: FDA-Public Use
  Company Number: CA-ROCHE-627438

PATIENT
  Sex: Female

DRUGS (2)
  1. CAPECITABINE [Suspect]
     Route: 048
     Dates: start: 20080521, end: 20081118
  2. BEVACIZUMAB [Suspect]
     Route: 042
     Dates: start: 20080616, end: 20081118

REACTIONS (1)
  - DEATH [None]
